FAERS Safety Report 6136643-7 (Version None)
Quarter: 2009Q1

REPORT INFORMATION
  Report Type: 
  Country: None (occurrence: None)
  Receive Date: 20090330
  Receipt Date: 20090319
  Transmission Date: 20090719
  Serious: Yes (Hospitalization)
  Sender: FDA-Public Use
  Company Number: B0535378A

PATIENT
  Sex: Male

DRUGS (7)
  1. SERETIDE [Suspect]
     Indication: CHRONIC OBSTRUCTIVE PULMONARY DISEASE
     Dosage: 1PUFF TWICE PER DAY
     Route: 055
     Dates: start: 20061229, end: 20081117
  2. ASPIRIN [Suspect]
     Indication: DRUG USE FOR UNKNOWN INDICATION
     Dosage: 75MG IN THE MORNING
     Route: 065
     Dates: start: 20060101
  3. SIMVASTATIN [Suspect]
     Dosage: 40MG TWICE PER DAY
     Route: 065
     Dates: start: 20060101
  4. DILTIAZEM [Suspect]
     Indication: DRUG USE FOR UNKNOWN INDICATION
     Dosage: 90MG TWICE PER DAY
     Route: 065
  5. TIOTROPIUM [Suspect]
     Indication: DRUG USE FOR UNKNOWN INDICATION
     Dosage: 18MCG PER DAY
     Route: 055
  6. UNSPECIFIED INHALER [Suspect]
     Indication: CHRONIC OBSTRUCTIVE PULMONARY DISEASE
     Route: 055
     Dates: start: 20060101
  7. UNKNOWN DRUG [Suspect]
     Route: 065
     Dates: start: 20060101

REACTIONS (2)
  - DYSPNOEA [None]
  - LOWER RESPIRATORY TRACT INFECTION [None]
